FAERS Safety Report 7687011-8 (Version None)
Quarter: 2011Q3

REPORT INFORMATION
  Report Type: 
  Country: None (occurrence: None)
  Receive Date: 20110816
  Receipt Date: 20110808
  Transmission Date: 20111222
  Serious: Yes (Life-Threatening, Hospitalization, Other)
  Sender: FDA-Public Use
  Company Number: DE-ABBOTT-11P-062-0842311-00

PATIENT
  Age: 75 Year
  Sex: Female
  Weight: 78 kg

DRUGS (14)
  1. CANDESARTAN CILEXETIL/HYDROCHLOROTHIAZIDE [Suspect]
     Dosage: 8/6.25MG (16/12.5MG X 0.5 TABLET)
     Route: 048
     Dates: start: 20110502, end: 20110504
  2. CANDESARTAN CILEXETIL/HYDROCHLOROTHIAZIDE [Suspect]
     Route: 048
     Dates: start: 20110322, end: 20110325
  3. ATACAND HCT [Suspect]
     Indication: PRODUCT USED FOR UNKNOWN INDICATION
     Dosage: 16/12.5MG  1X1 TABLET DAILY
     Route: 048
     Dates: start: 20090101, end: 20110101
  4. RAMIPRIL [Suspect]
     Indication: PRODUCT USED FOR UNKNOWN INDICATION
     Route: 048
     Dates: start: 20110322, end: 20110504
  5. CANDESARTAN CILEXETIL/HYDROCHLOROTHIAZIDE [Suspect]
     Dosage: 16/12.5MG (1 IN 1 DAY)
     Route: 048
     Dates: start: 20110101, end: 20110501
  6. ATACAND HCT [Suspect]
     Dosage: 16/12.5MG  1X 0.5 TABLET DAILY
     Route: 048
     Dates: start: 20110502, end: 20110504
  7. ATACAND HCT [Suspect]
     Dates: start: 20110428, end: 20110501
  8. 12 UNKNOWN DRUGS [Concomitant]
     Indication: PRODUCT USED FOR UNKNOWN INDICATION
  9. ATACAND HCT [Suspect]
     Dosage: 16/12.5MG (1 IN 1 DAY)
     Route: 048
     Dates: start: 20110101, end: 20110501
  10. ATACAND HCT [Suspect]
     Dosage: 16/12.5MG 1X1 TABLET DAILY
     Route: 048
     Dates: start: 20110101, end: 20110501
  11. CANDESARTAN CILEXETIL/HYDROCHLOROTHIAZIDE [Suspect]
     Indication: PRODUCT USED FOR UNKNOWN INDICATION
     Route: 048
     Dates: start: 20090101, end: 20110101
  12. ATACAND HCT [Suspect]
     Dosage: 16/12.5MG 1X1 TABLET DAILY
     Route: 048
     Dates: start: 20110326, end: 20110404
  13. CLARITHROMYCIN [Suspect]
     Indication: PNEUMONIA
     Route: 048
     Dates: start: 20110421, end: 20110426
  14. CANDESARTAN CILEXETIL/HYDROCHLOROTHIAZIDE [Suspect]
     Route: 048
     Dates: start: 20110405, end: 20110427

REACTIONS (9)
  - HYPOTENSION [None]
  - PNEUMONIA [None]
  - BLOOD CREATININE INCREASED [None]
  - HYPOTHYROIDISM [None]
  - ASTHENIA [None]
  - URINARY TRACT INFECTION [None]
  - RENAL FAILURE ACUTE [None]
  - HYPONATRAEMIA [None]
  - DIZZINESS [None]
